FAERS Safety Report 11456995 (Version 4)
Quarter: 2016Q1

REPORT INFORMATION
  Report Type: Report from Study
  Country: CO (occurrence: CO)
  Receive Date: 20150904
  Receipt Date: 20160322
  Transmission Date: 20160525
  Serious: Yes (Hospitalization)
  Sender: FDA-Public Use
  Company Number: PHHY2015CO106448

PATIENT
  Age: 69 Year
  Sex: Male
  Weight: 75 kg

DRUGS (1)
  1. SANDOSTATIN LAR DEPOT [Suspect]
     Active Substance: OCTREOTIDE ACETATE
     Indication: HEPATIC CANCER METASTATIC
     Dosage: 30 MG, QMO
     Route: 030
     Dates: start: 20150123, end: 2015

REACTIONS (4)
  - Vomiting [Unknown]
  - Neoplasm [Unknown]
  - Diarrhoea [Unknown]
  - Product use issue [Unknown]

NARRATIVE: CASE EVENT DATE: 20150123
